FAERS Safety Report 21125005 (Version 1)
Quarter: 2022Q3

REPORT INFORMATION
  Report Type: Spontaneous
  Country: US (occurrence: None)
  Receive Date: 20220724
  Receipt Date: 20220724
  Transmission Date: 20221027
  Serious: No
  Sender: FDA-Public Use
  Company Number: None

PATIENT
  Age: 49 Year
  Sex: Female
  Weight: 81 kg

DRUGS (4)
  1. PAXLOVID [Suspect]
     Active Substance: NIRMATRELVIR\RITONAVIR
     Indication: COVID-19
     Dosage: OTHER QUANTITY : 3 TABLET(S);?FREQUENCY : EVERY 12 HOURS;?
     Route: 048
  2. DROSPIRENONE  EE 3 0.03 MG TAB TABLET [Concomitant]
  3. Daily multi vitamin [Concomitant]
  4. zinc vitamin-D [Concomitant]

REACTIONS (2)
  - Rash pruritic [None]
  - Dysgeusia [None]

NARRATIVE: CASE EVENT DATE: 20220708
